FAERS Safety Report 7124624-6 (Version None)
Quarter: 2010Q4

REPORT INFORMATION
  Report Type: 
  Country: None (occurrence: None)
  Receive Date: 20101121
  Receipt Date: 20101121
  Transmission Date: 20110411
  Serious: Yes (Life-Threatening, Other)
  Sender: FDA-Public Use
  Company Number: None

PATIENT
  Sex: Female
  Weight: 63.5036 kg

DRUGS (1)
  1. AMBIEN CR [Suspect]
     Indication: INSOMNIA
     Dosage: 12.5 MG ONCE A NIGHT PO
     Route: 048
     Dates: start: 20091101, end: 20101016

REACTIONS (6)
  - CONCUSSION [None]
  - CONTUSION [None]
  - FALL [None]
  - PERIORBITAL HAEMATOMA [None]
  - RIB FRACTURE [None]
  - SOMNAMBULISM [None]
